FAERS Safety Report 17021754 (Version 1)
Quarter: 2019Q4

REPORT INFORMATION
  Report Type: Spontaneous
  Country: US (occurrence: US)
  Receive Date: 20191112
  Receipt Date: 20191112
  Transmission Date: 20200122
  Serious: No
  Sender: FDA-Public Use
  Company Number: US-AKRON, INC.-2076729

PATIENT

DRUGS (1)
  1. AKTEN [Suspect]
     Active Substance: LIDOCAINE HYDROCHLORIDE
     Route: 047

REACTIONS (1)
  - Drug ineffective [Unknown]
